FAERS Safety Report 24379073 (Version 4)
Quarter: 2024Q4

REPORT INFORMATION
  Report Type: Spontaneous
  Country: CA (occurrence: CA)
  Receive Date: 20240930
  Receipt Date: 20241009
  Transmission Date: 20250114
  Serious: No
  Sender: PFIZER
  Company Number: CA-PFIZER INC-202300319541

PATIENT
  Age: 33 Year
  Sex: Male

DRUGS (2)
  1. ABRILADA [Suspect]
     Active Substance: ADALIMUMAB-AFZB
     Indication: Psoriatic arthropathy
     Dosage: 80 MG, EVERY 4 MONTHS
     Route: 058
     Dates: start: 20240301
  2. ABRILADA [Suspect]
     Active Substance: ADALIMUMAB-AFZB
     Dosage: 80 MG, EVERY 4 MONTHS
     Route: 058
     Dates: start: 202406

REACTIONS (6)
  - Off label use [Unknown]
  - Off label use [Unknown]
  - Incorrect dose administered by device [Unknown]
  - Device failure [Unknown]
  - Needle issue [Unknown]
  - Device leakage [Unknown]

NARRATIVE: CASE EVENT DATE: 20240601
